FAERS Safety Report 13065638 (Version 1)
Quarter: 2016Q4

REPORT INFORMATION
  Report Type: Spontaneous
  Country: US (occurrence: US)
  Receive Date: 20161227
  Receipt Date: 20161227
  Transmission Date: 20170207
  Serious: Yes (Other)
  Sender: FDA-Public Use
  Company Number: US-PFIZER INC-2016597741

PATIENT
  Sex: Female

DRUGS (2)
  1. ADVIL [Suspect]
     Active Substance: IBUPROFEN
  2. ASPIRIN /00002701/ [Suspect]
     Active Substance: ASPIRIN

REACTIONS (3)
  - Ulcer [Unknown]
  - Nausea [Unknown]
  - Ulcer haemorrhage [Unknown]
